FAERS Safety Report 11684692 (Version 1)
Quarter: 2015Q4

REPORT INFORMATION
  Report Type: Spontaneous
  Country: US (occurrence: US)
  Receive Date: 20151029
  Receipt Date: 20151029
  Transmission Date: 20160304
  Serious: No
  Sender: FDA-Public Use
  Company Number: US-AMGEN-USASP2015113723

PATIENT
  Age: 38 Year
  Sex: Male

DRUGS (1)
  1. ENBREL [Suspect]
     Active Substance: ETANERCEPT
     Indication: ANKYLOSING SPONDYLITIS
     Dosage: 50 MG, QWK
     Route: 058
     Dates: start: 20140125

REACTIONS (8)
  - Vein disorder [Unknown]
  - Injection site coldness [Unknown]
  - Injection site discolouration [Unknown]
  - Device issue [Unknown]
  - Injection site bruising [Unknown]
  - Injection site pain [Unknown]
  - Incorrect route of drug administration [Unknown]
  - Injection site haemorrhage [Unknown]

NARRATIVE: CASE EVENT DATE: 20151025
